FAERS Safety Report 12542440 (Version 2)
Quarter: 2019Q1

REPORT INFORMATION
  Report Type: Spontaneous
  Country: AT (occurrence: AT)
  Receive Date: 20160708
  Receipt Date: 20190111
  Transmission Date: 20190417
  Serious: Yes (Life-Threatening, Hospitalization, Other)
  Sender: FDA-Public Use
  Company Number: AT-ASTRAZENECA-2014SE76909

PATIENT
  Age: 54 Year
  Sex: Female

DRUGS (17)
  1. RISPERDAL [Suspect]
     Active Substance: RISPERIDONE
     Route: 048
     Dates: start: 20140519, end: 20140818
  2. EUCREAS [Concomitant]
     Active Substance: METFORMIN HYDROCHLORIDE\VILDAGLIPTIN
     Indication: DIABETES MELLITUS
     Dosage: 100/200 MG DAILY
     Route: 048
     Dates: start: 20140506, end: 20140818
  3. SEROQUEL [Suspect]
     Active Substance: QUETIAPINE FUMARATE
     Route: 048
     Dates: start: 20140718, end: 20140818
  4. TRITTICO RETARD [Suspect]
     Active Substance: TRAZODONE HYDROCHLORIDE
     Route: 048
     Dates: start: 20140526, end: 20140818
  5. PROPOFOL. [Suspect]
     Active Substance: PROPOFOL
     Indication: AGITATION
     Route: 042
  6. SEROQUEL [Suspect]
     Active Substance: QUETIAPINE FUMARATE
     Route: 048
     Dates: start: 20140718, end: 20140818
  7. SEROQUEL [Suspect]
     Active Substance: QUETIAPINE FUMARATE
     Route: 048
     Dates: start: 20140505, end: 20140717
  8. SEROQUEL [Suspect]
     Active Substance: QUETIAPINE FUMARATE
     Dosage: 300.0MG UNKNOWN
     Route: 048
  9. SIMAVASTAD [Concomitant]
     Route: 048
     Dates: start: 20140505, end: 20140818
  10. CONCOR [Concomitant]
     Active Substance: BISOPROLOL FUMARATE
     Indication: HYPERTENSION
     Route: 048
  11. ABILIFY [Suspect]
     Active Substance: ARIPIPRAZOLE
     Dosage: 7.5-40 MG ONCE/SINGLE ADMINISTRATION
     Route: 030
  12. DIAMICRON [Concomitant]
     Active Substance: GLICLAZIDE
     Indication: DIABETES MELLITUS
     Route: 048
     Dates: start: 20140602, end: 20140818
  13. TEMESTA [LORAZEPAM] [Concomitant]
     Active Substance: LORAZEPAM
     Dosage: 2-10 MG
     Route: 048
     Dates: start: 20140820
  14. ABILIFY [Suspect]
     Active Substance: ARIPIPRAZOLE
     Dosage: 7.5MG ONCE/SINGLE ADMINISTRATION
     Route: 030
     Dates: start: 20140819, end: 20140819
  15. ACEMIN [Concomitant]
     Active Substance: LISINOPRIL
     Indication: HYPERTENSION
     Route: 048
     Dates: start: 20140528, end: 20140818
  16. CONCOR [Concomitant]
     Active Substance: BISOPROLOL FUMARATE
     Indication: HYPERTENSION
     Route: 048
     Dates: start: 20140521, end: 20140818
  17. TEMESTA [LORAZEPAM] [Concomitant]
     Active Substance: LORAZEPAM
     Route: 048
     Dates: start: 20140819, end: 20140819

REACTIONS (13)
  - Intentional product misuse [Unknown]
  - Tachycardia [Not Recovered/Not Resolved]
  - Blood pressure increased [Unknown]
  - Diabetes mellitus inadequate control [Unknown]
  - Electrocardiogram QT prolonged [Recovered/Resolved]
  - Blood creatine phosphokinase increased [Not Recovered/Not Resolved]
  - Prescribed overdose [Unknown]
  - Blood magnesium decreased [Unknown]
  - Sinus tachycardia [Unknown]
  - Off label use [Unknown]
  - N-terminal prohormone brain natriuretic peptide increased [Not Recovered/Not Resolved]
  - Electrocardiogram T wave inversion [Not Recovered/Not Resolved]
  - C-reactive protein increased [Not Recovered/Not Resolved]

NARRATIVE: CASE EVENT DATE: 20140818
